FAERS Safety Report 5903346-0 (Version None)
Quarter: 2008Q3

REPORT INFORMATION
  Report Type: 
  Country: None (occurrence: None)
  Receive Date: 20080926
  Receipt Date: 20080912
  Transmission Date: 20090109
  Serious: Yes (Hospitalization, Disabling)
  Sender: FDA-Public Use
  Company Number: ENC200800169

PATIENT
  Age: 45 Year
  Sex: Female

DRUGS (6)
  1. ARGATROBAN [Suspect]
     Indication: HEPARIN-INDUCED THROMBOCYTOPENIA
     Dosage: 3.3 MCG/KG/MIN,SUBCUTANEOUS, 9.9 MCG/KG/MIN
     Route: 057
     Dates: end: 20080812
  2. ARGATROBAN [Suspect]
     Indication: HEPARIN-INDUCED THROMBOCYTOPENIA
     Dosage: 3.3 MCG/KG/MIN,SUBCUTANEOUS, 9.9 MCG/KG/MIN
     Route: 057
     Dates: start: 20080801
  3. ALPROSTADIL [Concomitant]
  4. PREGABALIN (PREGABALIN) [Concomitant]
  5. AMITRIPTYLINE HYDROCHLORIDE [Concomitant]
  6. PIRITRAMIDE (PIRITRAMIDE) [Concomitant]

REACTIONS (6)
  - ACTIVATED PARTIAL THROMBOPLASTIN TIME PROLONGED [None]
  - DEEP VEIN THROMBOSIS [None]
  - GANGRENE [None]
  - LEG AMPUTATION [None]
  - THROMBOSIS [None]
  - WOUND [None]
